FAERS Safety Report 14391241 (Version 1)
Quarter: 2018Q1

REPORT INFORMATION
  Report Type: Spontaneous
  Country: US (occurrence: US)
  Receive Date: 20180112
  Receipt Date: 20180112
  Transmission Date: 20180509
  Serious: Yes (Death)
  Sender: FDA-Public Use
  Company Number: None

PATIENT
  Age: 80 Year
  Sex: Female

DRUGS (19)
  1. TOBRAMYCIN. [Suspect]
     Active Substance: TOBRAMYCIN
     Indication: BRONCHIECTASIS
     Dosage: 1 VIAL EVERY OTHER 14 DAYS INHALATION
     Route: 055
  2. HYOSCYAMINE. [Concomitant]
     Active Substance: HYOSCYAMINE
  3. PROPRANOLOL [Concomitant]
     Active Substance: PROPRANOLOL HYDROCHLORIDE
  4. ESTRADIOL. [Concomitant]
     Active Substance: ESTRADIOL
  5. PULMOZYME [Suspect]
     Active Substance: DORNASE ALFA
     Indication: BRONCHIECTASIS
     Route: 055
     Dates: end: 20180109
  6. LIDOCAINE. [Concomitant]
     Active Substance: LIDOCAINE
  7. METHADONE [Concomitant]
     Active Substance: METHADONE HYDROCHLORIDE
  8. ALPRAZOLAM. [Concomitant]
     Active Substance: ALPRAZOLAM
  9. CITALOPRAM [Concomitant]
     Active Substance: CITALOPRAM HYDROBROMIDE
  10. HALOPERIDOL. [Concomitant]
     Active Substance: HALOPERIDOL
  11. MORPHINE SUL [Concomitant]
     Active Substance: MORPHINE SULFATE
  12. METHOCARBAM [Concomitant]
  13. LATANOPROST. [Concomitant]
     Active Substance: LATANOPROST
  14. LORAZEPAM. [Concomitant]
     Active Substance: LORAZEPAM
  15. ACETYLCYST [Concomitant]
  16. ALBUTEROL. [Concomitant]
     Active Substance: ALBUTEROL
  17. HYDROCO/APAP [Concomitant]
     Active Substance: ACETAMINOPHEN\HYDROCODONE
  18. NYSTOP [Concomitant]
     Active Substance: NYSTATIN
  19. CYANOCOBALAMIN. [Concomitant]
     Active Substance: CYANOCOBALAMIN

REACTIONS (1)
  - Death [None]

NARRATIVE: CASE EVENT DATE: 20180109
